FAERS Safety Report 25416936 (Version 2)
Quarter: 2025Q3

REPORT INFORMATION
  Report Type: Spontaneous
  Country: CN (occurrence: CN)
  Receive Date: 20250610
  Receipt Date: 20250915
  Transmission Date: 20251020
  Serious: Yes (Other)
  Sender: MERCK SHARP & DOHME LLC
  Company Number: CN-SICHUAN KELUNBIOTECH BIOPHARMACEUTICAL CO. LTD.-2025KB000104

PATIENT
  Age: 55 Year
  Sex: Female
  Weight: 55.1 kg

DRUGS (2)
  1. SACITUZUMAB TIRUMOTECAN [Suspect]
     Active Substance: SACITUZUMAB TIRUMOTECAN
     Indication: Breast cancer
     Route: 041
     Dates: start: 20250508, end: 20250508
  2. SACITUZUMAB TIRUMOTECAN [Suspect]
     Active Substance: SACITUZUMAB TIRUMOTECAN
     Indication: Breast cancer

REACTIONS (1)
  - Myelosuppression [Not Recovered/Not Resolved]
